FAERS Safety Report 14776142 (Version 1)
Quarter: 2018Q2

REPORT INFORMATION
  Report Type: Spontaneous
  Country: CH (occurrence: CH)
  Receive Date: 20180418
  Receipt Date: 20180418
  Transmission Date: 20180711
  Serious: Yes (Other)
  Sender: FDA-Public Use
  Company Number: CH-TEVA-2018-CH-882432

PATIENT
  Age: 48 Year
  Sex: Female

DRUGS (15)
  1. INDERAL [Concomitant]
     Active Substance: PROPRANOLOL HYDROCHLORIDE
     Dates: start: 20180205, end: 20180205
  2. COLECALCIFEROL [Concomitant]
     Active Substance: CHOLECALCIFEROL
     Dates: start: 20180203, end: 20180203
  3. IRFEN [Suspect]
     Active Substance: IBUPROFEN
     Dosage: 800 MILLIGRAM DAILY;
     Route: 048
     Dates: start: 20180205, end: 20180205
  4. CO-DAFALGAN [Suspect]
     Active Substance: ACETAMINOPHEN\CODEINE PHOSPHATE
     Route: 048
     Dates: start: 20170925, end: 20170925
  5. CIPROXIN [Suspect]
     Active Substance: CIPROFLOXACIN
     Route: 048
     Dates: start: 20170925, end: 20170925
  6. ARNICA [Concomitant]
     Active Substance: ARNICA MONTANA FLOWER
     Dates: start: 20170922, end: 20170924
  7. FORMAG [Concomitant]
     Dates: start: 20180203, end: 20180203
  8. VALTREX [Suspect]
     Active Substance: VALACYCLOVIR HYDROCHLORIDE
     Route: 048
     Dates: start: 20170925, end: 20170925
  9. LACTIBIANE [Concomitant]
     Dates: start: 20180203, end: 20180203
  10. MIDAZOLAM [Suspect]
     Active Substance: MIDAZOLAM HYDROCHLORIDE
     Route: 048
     Dates: start: 20170925, end: 20170925
  11. TILUR [Concomitant]
     Active Substance: ACEMETACIN
     Dates: start: 20170925, end: 20170925
  12. DAFALGAN [Suspect]
     Active Substance: ACETAMINOPHEN
     Route: 048
     Dates: start: 20170111, end: 20170111
  13. MOTILIUM [Concomitant]
     Active Substance: DOMPERIDONE
     Dates: start: 20180205, end: 20180205
  14. IRFEN [Suspect]
     Active Substance: IBUPROFEN
     Route: 048
     Dates: start: 20170111, end: 20170111
  15. OSCILLOCOCCINUM [Concomitant]
     Active Substance: CAIRINA MOSCHATA HEART/LIVER AUTOLYSATE
     Dates: start: 20170111, end: 20170111

REACTIONS (3)
  - Hepatocellular injury [Recovered/Resolved]
  - Hepatocellular injury [Recovered/Resolved]
  - Hepatocellular injury [Recovered/Resolved]

NARRATIVE: CASE EVENT DATE: 20170111
